FAERS Safety Report 15334979 (Version 8)
Quarter: 2020Q3

REPORT INFORMATION
  Report Type: Report from Study
  Country: FR (occurrence: FR)
  Receive Date: 20180830
  Receipt Date: 20200701
  Transmission Date: 20201102
  Serious: Yes (Hospitalization)
  Sender: FDA-Public Use
  Company Number: PHHO2018FR009577

PATIENT
  Age: 62 Year
  Sex: Male
  Weight: 80 kg

DRUGS (12)
  1. LEPTICUR [Concomitant]
     Active Substance: TROPATEPINE HYDROCHLORIDE
     Indication: PRODUCT USED FOR UNKNOWN INDICATION
     Dosage: 10 MG, QD
     Route: 002
     Dates: start: 20180310
  2. TERCIAN [Concomitant]
     Active Substance: CYAMEMAZINE
     Indication: DEPRESSION
     Dosage: 13 MG, BID
     Route: 002
  3. COMPARATOR DABRAFENIB [Suspect]
     Active Substance: DABRAFENIB
     Indication: MALIGNANT MELANOMA
     Dosage: 150 MG, BID
     Route: 048
     Dates: start: 20171206, end: 20180815
  4. VENTOLINE [Concomitant]
     Active Substance: ALBUTEROL
     Indication: ASTHMA
     Dosage: 2 UNK, BID
     Route: 055
  5. RISPERDAL [Concomitant]
     Active Substance: RISPERIDONE
     Indication: DEPRESSION
     Dosage: 2 MG, QD
     Route: 002
  6. PLACEBO [Suspect]
     Active Substance: UNSPECIFIED INGREDIENT
     Indication: MALIGNANT MELANOMA
     Dosage: UNK
     Route: 042
     Dates: start: 20171206, end: 20180723
  7. IMIPRAMINE [Concomitant]
     Active Substance: IMIPRAMINE
     Indication: PRODUCT USED FOR UNKNOWN INDICATION
     Dosage: UNK
     Route: 065
  8. TEMESTA [Concomitant]
     Indication: PRODUCT USED FOR UNKNOWN INDICATION
     Dosage: UNK
     Route: 065
  9. INEXIUM [Concomitant]
     Active Substance: ESOMEPRAZOLE
     Indication: PRODUCT USED FOR UNKNOWN INDICATION
     Dosage: 20 MG, QD
     Route: 002
  10. MACROGOL [Concomitant]
     Active Substance: POLYETHYLENE GLYCOLS
     Indication: CONSTIPATION
     Dosage: 20 G, BID
     Route: 002
  11. TRAMETINIB [Suspect]
     Active Substance: TRAMETINIB
     Indication: MALIGNANT MELANOMA
     Dosage: 2 MG, QD
     Route: 048
     Dates: start: 20171206, end: 20180815
  12. EDUCTYL [Concomitant]
     Active Substance: POTASSIUM BITARTRATE\SODIUM BICARBONATE
     Indication: CONSTIPATION
     Dosage: 2 G, QD
     Route: 054

REACTIONS (1)
  - Cerebrovascular accident [Recovered/Resolved with Sequelae]

NARRATIVE: CASE EVENT DATE: 20180815
